FAERS Safety Report 24358873 (Version 1)
Quarter: 2024Q3

REPORT INFORMATION
  Report Type: Report from Study
  Country: US (occurrence: US)
  Receive Date: 20240924
  Receipt Date: 20240924
  Transmission Date: 20241017
  Serious: Yes (Other)
  Sender: BAYER
  Company Number: US-BAYER-2024A133505

PATIENT
  Age: 46 Year
  Sex: Male
  Weight: 102.95 kg

DRUGS (19)
  1. ADEMPAS [Suspect]
     Active Substance: RIOCIGUAT
     Indication: Pulmonary arterial hypertension
     Dosage: UNK
     Dates: start: 20240627
  2. ADEMPAS [Suspect]
     Active Substance: RIOCIGUAT
     Indication: Pulmonary arterial hypertension
     Dosage: 1.5 MG, TID
     Route: 048
  3. EZETIMIBE [Concomitant]
     Active Substance: EZETIMIBE
  4. PREDNISONE [Concomitant]
     Active Substance: PREDNISONE
  5. ROSUVASTATIN CALCIUM [Concomitant]
     Active Substance: ROSUVASTATIN CALCIUM
  6. CINACALCET HYDROCHLORIDE [Concomitant]
     Active Substance: CINACALCET HYDROCHLORIDE
  7. MAGNESIUM [Concomitant]
     Active Substance: MAGNESIUM
  8. DOXYCYCLINE HYCLATE [Concomitant]
     Active Substance: DOXYCYCLINE HYCLATE
  9. ALBUTEROL SULFATE [Concomitant]
     Active Substance: ALBUTEROL SULFATE
  10. ELIQUIS [Concomitant]
     Active Substance: APIXABAN
  11. METOPROLOL SUCCINATE [Concomitant]
     Active Substance: METOPROLOL SUCCINATE
  12. METFORMIN HYDROCHLORIDE [Concomitant]
     Active Substance: METFORMIN HYDROCHLORIDE
  13. OXYGEN [Concomitant]
     Active Substance: OXYGEN
  14. FAMOTIDINE [Concomitant]
     Active Substance: FAMOTIDINE
  15. ASMANEX [Concomitant]
     Active Substance: MOMETASONE FUROATE
  16. TACROLIMUS [Concomitant]
     Active Substance: TACROLIMUS
  17. ASPIRIN [Concomitant]
     Active Substance: ASPIRIN
  18. LOSARTAN POTASSIUM [Concomitant]
     Active Substance: LOSARTAN POTASSIUM
  19. MYCOPHENOLIC ACID [Concomitant]
     Active Substance: MYCOPHENOLIC ACID

REACTIONS (4)
  - Lung disorder [Not Recovered/Not Resolved]
  - Contusion [None]
  - Increased tendency to bruise [None]
  - Limb injury [None]
